FAERS Safety Report 10675996 (Version 1)
Quarter: 2014Q4

REPORT INFORMATION
  Report Type: Spontaneous
  Country: US (occurrence: US)
  Receive Date: 20141225
  Receipt Date: 20141225
  Transmission Date: 20150529
  Serious: Yes (Other)
  Sender: FDA-Public Use
  Company Number: US-SA-2014SA177518

PATIENT

DRUGS (1)
  1. PLAVIX [Suspect]
     Active Substance: CLOPIDOGREL BISULFATE
     Route: 065

REACTIONS (3)
  - Glomerular filtration rate decreased [Unknown]
  - Creatinine renal clearance decreased [Unknown]
  - Albumin urine present [Recovered/Resolved]

NARRATIVE: CASE EVENT DATE: 20141022
